FAERS Safety Report 10168968 (Version 2)
Quarter: 2014Q2

REPORT INFORMATION
  Report Type: Report from Study
  Country: VE (occurrence: VE)
  Receive Date: 20140513
  Receipt Date: 20140526
  Transmission Date: 20141212
  Serious: Yes (Hospitalization)
  Sender: FDA-Public Use
  Company Number: VE-ROCHE-1399500

PATIENT
  Age: 36 Year
  Sex: Female

DRUGS (4)
  1. XOLAIR [Suspect]
     Indication: ASTHMA
     Route: 058
     Dates: start: 201303
  2. XOLAIR [Suspect]
     Route: 058
     Dates: end: 201401
  3. FORADIL [Suspect]
     Indication: ASTHMA
     Dosage: DAILY INHALATION
     Route: 065
  4. MIFLONIDE [Suspect]
     Indication: ASTHMA
     Dosage: INHALATION
     Route: 065

REACTIONS (5)
  - Ovarian neoplasm [Recovering/Resolving]
  - Rhinorrhoea [Unknown]
  - Sneezing [Unknown]
  - Oropharyngeal pain [Unknown]
  - Cough [Unknown]
